FAERS Safety Report 9801484 (Version 2)
Quarter: 2014Q1

REPORT INFORMATION
  Report Type: Spontaneous
  Country: IT (occurrence: IT)
  Receive Date: 20140107
  Receipt Date: 20140110
  Transmission Date: 20141002
  Serious: Yes (Hospitalization, Other)
  Sender: FDA-Public Use
  Company Number: IT-009507513-1401ITA001153

PATIENT
  Age: 62 Year
  Sex: Female

DRUGS (6)
  1. PEGINTRON [Suspect]
     Indication: HEPATITIS C
     Dosage: 100 MCG, QW
     Route: 058
     Dates: start: 20130401, end: 20130901
  2. COPEGUS [Suspect]
     Indication: HEPATITIS C
     Dosage: 4 ,POSOLOGICAL UNITS, QD
     Route: 048
     Dates: start: 20130401, end: 20130901
  3. OMEPRAZOLE [Concomitant]
     Dosage: 1 DF, UNK
  4. ALLOPURINOL [Concomitant]
     Dosage: 1 DF, UNK
  5. DIBASE [Concomitant]
     Dosage: STREGTH: 10000 UI/ML, ORAL DROPS
     Route: 048
  6. GAVISCON [Concomitant]
     Dosage: 500 MG/10ML+267 MG/10 ML
     Route: 048

REACTIONS (1)
  - Pancytopenia [Not Recovered/Not Resolved]
